FAERS Safety Report 9706181 (Version 2)
Quarter: 2013Q4

REPORT INFORMATION
  Report Type: Spontaneous
  Country: KZ (occurrence: KZ)
  Receive Date: 20131124
  Receipt Date: 20131218
  Transmission Date: 20140711
  Serious: Yes (Death, Life-Threatening, Hospitalization, Other)
  Sender: FDA-Public Use
  Company Number: KZ-MERCK-1311KAZ008227

PATIENT
  Age: 58 Year
  Sex: Male

DRUGS (16)
  1. REBETOL [Suspect]
     Indication: CHRONIC HEPATITIS
     Dosage: 1200 MG, (3 CAPSULES IN THE MORNING AND 3 CAPSULES IN THE EVENING)
     Route: 048
     Dates: start: 20130318, end: 20130603
  2. REBETOL [Suspect]
     Dosage: 1200 MG, QD (3 CAPSULES IN THE MORNING AND 3 CAPSULES IN THE EVENING)
     Route: 048
     Dates: start: 20130719, end: 20130816
  3. REBETOL [Suspect]
     Dosage: 800 MG, QD (2 CAPSULES IN THE MORNING AND 2 CAPSULES IN THE EVENING)
     Route: 048
     Dates: start: 20130816, end: 201308
  4. REBETOL [Suspect]
     Dosage: 800 MG, QD (800MG DURING 2 WEEKS AND THROUGH 2 WEEKS TO INCREASE THE DOSE TILL 1000MG IN A DAY)
     Route: 048
     Dates: start: 20130822
  5. REBETOL [Suspect]
     Dosage: 800 MG, QD (2 CAPSULES TWICE A DAY)
     Dates: start: 20130924
  6. PEG-INTRON [Suspect]
     Indication: CHRONIC HEPATITIS
     Dosage: 100 MICROGRAM, QW (THEN TO INCREASE THE DOSAGE TILL 1.5 UNDER HIGH TOLERABILITY WAS PRESCRIBED)
     Dates: start: 20130318, end: 20130408
  7. PEG-INTRON [Suspect]
     Dosage: 120 MICROGRAM, QW
     Dates: start: 20130408, end: 20130603
  8. PEG-INTRON [Suspect]
     Dosage: 120 MICROGRAM, QW
     Dates: start: 20130719
  9. PEGASYS [Suspect]
     Dosage: 180 MICROGRAM, QW
     Dates: start: 20130603
  10. COPEGUS [Suspect]
     Dosage: 1200 MG (3 CAPSULES IN THE MORNING AND 3 CAPSULES IN THE EVENING)
     Route: 048
     Dates: start: 20130603
  11. HEPADIF [Concomitant]
     Dosage: 1 DF, TID
     Route: 048
     Dates: start: 201211
  12. HEPTRAL [Concomitant]
     Dosage: 1 DF, TID
     Route: 048
     Dates: start: 20130125
  13. URSOSAN [Concomitant]
     Dosage: 3 DF, QD
     Route: 048
     Dates: start: 201211
  14. URSOSAN [Concomitant]
     Dosage: 2 DF, QD
     Route: 048
     Dates: start: 201301
  15. URSOSAN [Concomitant]
     Dosage: 3 DF, QPM
     Route: 048
     Dates: start: 20130604
  16. CONCOR [Concomitant]
     Dosage: 2.5 MG, QAM
     Dates: start: 20130604

REACTIONS (11)
  - Oesophageal varices haemorrhage [Fatal]
  - Hepatocellular carcinoma [Unknown]
  - Alpha 1 foetoprotein increased [Recovering/Resolving]
  - Hepatic haematoma [Recovering/Resolving]
  - Ascites [Unknown]
  - Rash [Recovering/Resolving]
  - Pruritus [Recovering/Resolving]
  - Blood erythropoietin abnormal [Recovering/Resolving]
  - Angina pectoris [Unknown]
  - Cardiac failure [Unknown]
  - Hypertension [Unknown]
